FAERS Safety Report 10109682 (Version 1)
Quarter: 2014Q2

REPORT INFORMATION
  Report Type: Spontaneous
  Country: CA (occurrence: None)
  Receive Date: 20140423
  Receipt Date: 20140423
  Transmission Date: 20141212
  Serious: Yes (Life-Threatening)
  Sender: FDA-Public Use
  Company Number: FK201401408

PATIENT
  Age: 71 Year
  Sex: Male

DRUGS (1)
  1. TRANEXAMIC ACID (MANUFACTURER UNKNOWN) (TRANEXAMIC ACID) (TRANEXAMIC ACID) [Suspect]
     Indication: PROCEDURAL HAEMORRHAGE
     Dosage: TOTAL 1G INTRA-OPERATIVELY LOADING DOSE
     Route: 042

REACTIONS (8)
  - Cardiac arrest [None]
  - Aspiration [None]
  - Respiratory failure [None]
  - Generalised tonic-clonic seizure [None]
  - Deep vein thrombosis [None]
  - Loss of consciousness [None]
  - Lactic acidosis [None]
  - Blood creatinine increased [None]
